FAERS Safety Report 4865333-3 (Version None)
Quarter: 2005Q4

REPORT INFORMATION
  Report Type: 
  Country: None (occurrence: None)
  Receive Date: 20051221
  Receipt Date: 20051221
  Transmission Date: 20060501
  Serious: Yes (Death)
  Sender: FDA-Public Use
  Company Number: None

PATIENT
  Age: 52 Year
  Sex: Female

DRUGS (2)
  1. CAMPATH [Suspect]
     Indication: LYMPHOPLASMACYTOID LYMPHOMA/IMMUNOCYTOMA
     Dosage: 30 MG MON - WED - FRI IV BOLUS
     Route: 040
     Dates: start: 20050418, end: 20050610
  2. CAMPATH [Suspect]
     Indication: WALDENSTROM'S MACROGLOBULINAEMIA
     Dosage: 30 MG MON - WED - FRI IV BOLUS
     Route: 040
     Dates: start: 20050418, end: 20050610

REACTIONS (6)
  - CONDITION AGGRAVATED [None]
  - MENORRHAGIA [None]
  - NAUSEA [None]
  - PANCYTOPENIA [None]
  - POST PROCEDURAL HAEMORRHAGE [None]
  - VOMITING [None]
